FAERS Safety Report 24779039 (Version 1)
Quarter: 2024Q4

REPORT INFORMATION
  Report Type: Spontaneous
  Country: DE (occurrence: DE)
  Receive Date: 20241226
  Receipt Date: 20241226
  Transmission Date: 20250115
  Serious: Yes (Other)
  Sender: UCB
  Company Number: DE-UCBSA-2024067031

PATIENT
  Age: 89 Year
  Sex: Female

DRUGS (1)
  1. BIMZELX [Suspect]
     Active Substance: BIMEKIZUMAB-BKZX
     Indication: Psoriatic arthropathy
     Dosage: UNK, MONTHLY (QM) (APPROXIMATELY 1/4 YEARS AGO)
     Dates: start: 202409, end: 2024

REACTIONS (3)
  - Pneumonia [Recovered/Resolved]
  - Mouth ulceration [Unknown]
  - Lip swelling [Unknown]

NARRATIVE: CASE EVENT DATE: 20240101
